FAERS Safety Report 21971057 (Version 1)
Quarter: 2023Q1

REPORT INFORMATION
  Report Type: Other
  Country: US (occurrence: None)
  Receive Date: 20230209
  Receipt Date: 20230209
  Transmission Date: 20230417
  Serious: Yes (Hospitalization)
  Sender: FDA-Public Use
  Company Number: US-ROCHE-3280059

PATIENT
  Age: 71 Year
  Sex: Female
  Weight: 72.640 kg

DRUGS (2)
  1. OCREVUS [Suspect]
     Active Substance: OCRELIZUMAB
     Indication: Secondary progressive multiple sclerosis
     Dosage: SUBSEQUENT DOSE OF OCRELIZUMAB: 05/APR/2022, 06/SEP/2022
     Route: 042
     Dates: start: 20200121
  2. GILENYA [Concomitant]
     Active Substance: FINGOLIMOD HYDROCHLORIDE

REACTIONS (4)
  - COVID-19 pneumonia [Recovered/Resolved]
  - Gait inability [Recovered/Resolved]
  - Muscular weakness [Not Recovered/Not Resolved]
  - Fall [Unknown]

NARRATIVE: CASE EVENT DATE: 20230112
